FAERS Safety Report 14784395 (Version 5)
Quarter: 2018Q4

REPORT INFORMATION
  Report Type: Report from Study
  Country: US (occurrence: US)
  Receive Date: 20180420
  Receipt Date: 20181225
  Transmission Date: 20190204
  Serious: Yes (Other)
  Sender: FDA-Public Use
  Company Number: PHEH2018US015352

PATIENT
  Sex: Male

DRUGS (2)
  1. COSENTYX [Suspect]
     Active Substance: SECUKINUMAB
     Dosage: 300 MG, QMO
     Route: 058
     Dates: start: 201810
  2. COSENTYX [Suspect]
     Active Substance: SECUKINUMAB
     Indication: PSORIASIS
     Dosage: 300 MG, QMO
     Route: 058

REACTIONS (10)
  - Abdominal pain [Unknown]
  - Colitis ulcerative [Unknown]
  - Dyspepsia [Unknown]
  - Diarrhoea [Unknown]
  - Injection site bruising [Unknown]
  - Pain of skin [Unknown]
  - Drug ineffective [Unknown]
  - Haematochezia [Unknown]
  - Immune system disorder [Unknown]
  - Injection site haemorrhage [Unknown]
